FAERS Safety Report 12837735 (Version 10)
Quarter: 2021Q3

REPORT INFORMATION
  Report Type: Other
  Country: CA (occurrence: CA)
  Receive Date: 20161012
  Receipt Date: 20210831
  Transmission Date: 20211014
  Serious: Yes (Hospitalization, Other)
  Sender: FDA-Public Use
  Company Number: CA-ROCHE-1839573

PATIENT
  Age: 68 Year
  Sex: Female

DRUGS (17)
  1. VENTOLIN [Concomitant]
     Active Substance: ALBUTEROL SULFATE
     Indication: PRODUCT USED FOR UNKNOWN INDICATION
     Route: 065
  2. SINGULAIR [Concomitant]
     Active Substance: MONTELUKAST SODIUM
     Indication: PRODUCT USED FOR UNKNOWN INDICATION
     Route: 065
  3. NASONEX [Concomitant]
     Active Substance: MOMETASONE FUROATE
     Indication: PRODUCT USED FOR UNKNOWN INDICATION
     Route: 065
  4. ESTRACE [Concomitant]
     Active Substance: ESTRADIOL
     Indication: PRODUCT USED FOR UNKNOWN INDICATION
     Route: 065
  5. XOLAIR [Suspect]
     Active Substance: OMALIZUMAB
     Route: 058
     Dates: start: 20150130
  6. CORTISONE [Suspect]
     Active Substance: CORTISONE
     Indication: BRONCHITIS
     Route: 065
  7. OXEZE [Concomitant]
     Active Substance: FORMOTEROL FUMARATE
     Indication: PRODUCT USED FOR UNKNOWN INDICATION
     Route: 065
  8. FERAMAX [Concomitant]
     Active Substance: IRON\POLYSACCHARIDES
     Indication: PRODUCT USED FOR UNKNOWN INDICATION
     Route: 065
  9. ATIVAN [Concomitant]
     Active Substance: LORAZEPAM
     Indication: PRODUCT USED FOR UNKNOWN INDICATION
     Dosage: UNK, PRN
     Route: 065
  10. ALVESCO [Concomitant]
     Active Substance: CICLESONIDE
     Indication: PRODUCT USED FOR UNKNOWN INDICATION
     Route: 065
  11. XOLAIR [Suspect]
     Active Substance: OMALIZUMAB
     Route: 058
     Dates: start: 20170925
  12. SYMBICORT [Suspect]
     Active Substance: BUDESONIDE\FORMOTEROL FUMARATE DIHYDRATE
     Indication: PRODUCT USED FOR UNKNOWN INDICATION
     Route: 065
  13. MEDROXY [Concomitant]
     Active Substance: MEDROXYPROGESTERONE ACETATE
     Indication: PRODUCT USED FOR UNKNOWN INDICATION
     Route: 065
  14. AMLODIPINE [Concomitant]
     Active Substance: AMLODIPINE BESYLATE
     Indication: PRODUCT USED FOR UNKNOWN INDICATION
     Route: 065
  15. XOLAIR [Suspect]
     Active Substance: OMALIZUMAB
     Indication: ASTHMA
     Route: 058
     Dates: start: 20140210
  16. XOLAIR [Suspect]
     Active Substance: OMALIZUMAB
     Route: 058
     Dates: start: 201404, end: 201611
  17. CORTISONE [Suspect]
     Active Substance: CORTISONE
     Route: 065
     Dates: start: 201801

REACTIONS (27)
  - Pneumonia [Recovered/Resolved]
  - Depression [Unknown]
  - Insomnia [Unknown]
  - Contusion [Unknown]
  - Blood immunoglobulin E increased [Unknown]
  - Acne [Unknown]
  - Skin haemorrhage [Unknown]
  - Tendonitis [Unknown]
  - Dysphonia [Unknown]
  - Asthma [Unknown]
  - Skin atrophy [Unknown]
  - Hypoaesthesia oral [Unknown]
  - Skin reaction [Not Recovered/Not Resolved]
  - Bone pain [Unknown]
  - Bronchitis [Unknown]
  - Erythema [Not Recovered/Not Resolved]
  - Alopecia [Unknown]
  - Skin disorder [Unknown]
  - Pruritus [Not Recovered/Not Resolved]
  - Myalgia [Unknown]
  - Breast cancer [Recovering/Resolving]
  - Skin injury [Unknown]
  - Colitis ulcerative [Recovering/Resolving]
  - Dry skin [Unknown]
  - Rash erythematous [Unknown]
  - Injection site pain [Unknown]
  - Tongue geographic [Unknown]

NARRATIVE: CASE EVENT DATE: 201512
